FAERS Safety Report 5211940-8 (Version None)
Quarter: 2007Q1

REPORT INFORMATION
  Report Type: 
  Country: None (occurrence: None)
  Receive Date: 20070116
  Receipt Date: 20070105
  Transmission Date: 20070707
  Serious: Yes (Other)
  Sender: FDA-Public Use
  Company Number: GXKR2007IT00587

PATIENT
  Age: 7 Year
  Sex: Male

DRUGS (1)
  1. ACETAMINOPHEN [Suspect]
     Indication: PYREXIA

REACTIONS (4)
  - DRUG ERUPTION [None]
  - INFLAMMATION [None]
  - POST INFLAMMATORY PIGMENTATION CHANGE [None]
  - SKIN HYPERPIGMENTATION [None]
